FAERS Safety Report 8026283-7 (Version None)
Quarter: 2012Q1

REPORT INFORMATION
  Report Type: 
  Country: None (occurrence: None)
  Receive Date: 20120105
  Receipt Date: 20111122
  Transmission Date: 20120608
  Serious: No
  Sender: FDA-Public Use
  Company Number: US-ABBOTT-11P-163-0876774-00

PATIENT
  Sex: Female

DRUGS (1)
  1. SYNTHROID [Suspect]
     Indication: PRODUCT USED FOR UNKNOWN INDICATION
     Dates: start: 19910101

REACTIONS (14)
  - PALPITATIONS [None]
  - DIZZINESS [None]
  - VISION BLURRED [None]
  - PRODUCT COUNTERFEIT [None]
  - TREMOR [None]
  - PRODUCT SIZE ISSUE [None]
  - DRUG EFFECT INCREASED [None]
  - HYPERHIDROSIS [None]
  - ILL-DEFINED DISORDER [None]
  - ADVERSE REACTION [None]
  - HEADACHE [None]
  - PRODUCT PHYSICAL ISSUE [None]
  - CARDIAC FLUTTER [None]
  - MALAISE [None]
